FAERS Safety Report 8006488-1 (Version None)
Quarter: 2011Q4

REPORT INFORMATION
  Report Type: 
  Country: None (occurrence: None)
  Receive Date: 20111226
  Receipt Date: 20111215
  Transmission Date: 20120403
  Serious: Yes (Other)
  Sender: FDA-Public Use
  Company Number: PHHY2011ES107234

PATIENT
  Age: 74 Year
  Sex: Male

DRUGS (4)
  1. DIOVAN [Suspect]
     Dosage: 160 MG, UNK
     Route: 048
     Dates: start: 20111121
  2. METFORMIN HCL [Concomitant]
  3. FIBRATES [Concomitant]
  4. ASPIRIN [Concomitant]

REACTIONS (3)
  - BLOOD UREA INCREASED [None]
  - ATRIOVENTRICULAR BLOCK FIRST DEGREE [None]
  - HYPERKALAEMIA [None]
